FAERS Safety Report 18929854 (Version 2)
Quarter: 2021Q2

REPORT INFORMATION
  Report Type: Spontaneous
  Country: None (occurrence: US)
  Receive Date: 20210223
  Receipt Date: 20210517
  Transmission Date: 20210717
  Serious: Yes (Other)
  Sender: FDA-Public Use
  Company Number: US-GLAXOSMITHKLINE-US2021GSK050619

PATIENT
  Sex: Male

DRUGS (2)
  1. RANITIDINE. [Suspect]
     Active Substance: RANITIDINE
     Indication: DYSPEPSIA
     Dosage: UNKNOWN AT THIS TIME PRESCRIPTION
     Route: 065
     Dates: start: 201712, end: 202002
  2. RANITIDINE. [Suspect]
     Active Substance: RANITIDINE
     Indication: DYSPEPSIA
     Dosage: UNKNOWN AT THIS TIME PRESCRIPTION
     Route: 065
     Dates: start: 201712, end: 202002

REACTIONS (3)
  - Lip neoplasm malignant stage unspecified [Unknown]
  - Nasal cavity cancer [Unknown]
  - Ear neoplasm malignant [Unknown]
